FAERS Safety Report 9333954 (Version 6)
Quarter: 2014Q3

REPORT INFORMATION
  Report Type: Report from Study
  Country: US (occurrence: US)
  Receive Date: 20130606
  Receipt Date: 20140703
  Transmission Date: 20150326
  Serious: Yes (Death, Life-Threatening, Hospitalization, Other)
  Sender: FDA-Public Use
  Company Number: US-BRISTOL-MYERS SQUIBB COMPANY-18966416

PATIENT
  Age: 70 Year
  Sex: Female
  Weight: 57.61 kg

DRUGS (1)
  1. IPILIMUMAB [Suspect]
     Active Substance: IPILIMUMAB
     Indication: MALIGNANT MELANOMA
     Dosage: NO OF COURSES:4?LAST ADMINISTERED DATE:06MAY2013?TOTAL DOSE:560MG
     Route: 042
     Dates: start: 20130304

REACTIONS (9)
  - Lymphocyte count decreased [Unknown]
  - Localised oedema [Recovering/Resolving]
  - Fungal sepsis [Unknown]
  - Neutrophil count decreased [Unknown]
  - Anti-neutrophil cytoplasmic antibody positive vasculitis [Unknown]
  - Pneumonitis [Fatal]
  - Renal failure acute [Unknown]
  - Enterococcal sepsis [Unknown]
  - Acute febrile neutrophilic dermatosis [Unknown]

NARRATIVE: CASE EVENT DATE: 20130522
